FAERS Safety Report 6539733-X (Version None)
Quarter: 2010Q1

REPORT INFORMATION
  Report Type: 
  Country: None (occurrence: None)
  Receive Date: 20100115
  Receipt Date: 20100111
  Transmission Date: 20100710
  Serious: Yes (Life-Threatening, Hospitalization)
  Sender: FDA-Public Use
  Company Number: GB-MERCK-0909GBR00001

PATIENT
  Age: 71 Year
  Sex: Female
  Weight: 80 kg

DRUGS (5)
  1. ZETIA [Suspect]
     Indication: BLOOD CHOLESTEROL INCREASED
     Route: 048
     Dates: start: 20090730, end: 20090815
  2. ASPIRIN [Concomitant]
     Route: 065
  3. ATENOLOL [Concomitant]
     Route: 065
  4. BENDROFLUMETHIAZIDE [Concomitant]
     Route: 065
  5. DOTHIEPIN HYDROCHLORIDE [Concomitant]
     Route: 065

REACTIONS (9)
  - ABDOMINAL PAIN UPPER [None]
  - ACIDOSIS [None]
  - BLOOD AMYLASE INCREASED [None]
  - MULTI-ORGAN FAILURE [None]
  - OLIGURIA [None]
  - PANCREATITIS ACUTE [None]
  - SEPSIS [None]
  - SEPTIC SHOCK [None]
  - TACHYCARDIA [None]
